FAERS Safety Report 6639124-7 (Version None)
Quarter: 2010Q1

REPORT INFORMATION
  Report Type: 
  Country: None (occurrence: None)
  Receive Date: 20100312
  Receipt Date: 20100302
  Transmission Date: 20100710
  Serious: Yes (Death)
  Sender: FDA-Public Use
  Company Number: SPV1-2009-02584

PATIENT
  Sex: Male

DRUGS (3)
  1. ELAPRASE [Suspect]
     Indication: MUCOPOLYSACCHARIDOSIS II
     Dosage: IV DRIP
     Route: 041
     Dates: start: 20080626, end: 20091106
  2. ANTIBIOTICS [Concomitant]
  3. ANTIHISTAMINES [Concomitant]

REACTIONS (2)
  - DRUG DOSE OMISSION [None]
  - PNEUMONIA [None]
